FAERS Safety Report 9064090 (Version 1)
Quarter: 2013Q1

REPORT INFORMATION
  Report Type: Report from Study
  Country: US (occurrence: US)
  Receive Date: 20130130
  Receipt Date: 20130130
  Transmission Date: 20140127
  Serious: No
  Sender: FDA-Public Use
  Company Number: US-ABBOTT-12P-163-0929102-00

PATIENT
  Age: 71 Year
  Sex: Female

DRUGS (10)
  1. HUMIRA 40 MG/0.8 ML PEN [Suspect]
     Indication: RHEUMATOID ARTHRITIS
     Dates: start: 20120412
  2. HYDROCODONE [Concomitant]
     Indication: NEUROPATHY PERIPHERAL
     Dosage: 5/325MG AS NEEDED
  3. ZOLPIDEM [Concomitant]
     Indication: INSOMNIA
     Route: 048
  4. NEXIUM [Concomitant]
     Indication: PROPHYLAXIS AGAINST GASTROINTESTINAL ULCER
  5. FUROSEMIDE [Concomitant]
     Indication: FLUID RETENTION
  6. FUROSEMIDE [Concomitant]
     Indication: LYMPHADENOPATHY
  7. MIRAPEX [Concomitant]
     Indication: RESTLESS LEGS SYNDROME
     Dosage: DAILY
     Route: 048
  8. MIRAPEX [Concomitant]
     Indication: POOR QUALITY SLEEP
  9. CYMBALTA [Concomitant]
     Indication: SLEEP DISORDER THERAPY
     Dosage: AT H.S
  10. LEVOXYL [Concomitant]
     Indication: HYPOTHYROIDISM
     Dosage: DAILY

REACTIONS (11)
  - Mobility decreased [Not Recovered/Not Resolved]
  - Neck pain [Not Recovered/Not Resolved]
  - Drug ineffective [Not Recovered/Not Resolved]
  - Pain in extremity [Not Recovered/Not Resolved]
  - Musculoskeletal stiffness [Not Recovered/Not Resolved]
  - Drug ineffective [Not Recovered/Not Resolved]
  - Pain in extremity [Unknown]
  - Malaise [Unknown]
  - Pain [Unknown]
  - Drug ineffective [Unknown]
  - Drug ineffective [Unknown]
